FAERS Safety Report 19192481 (Version 5)
Quarter: 2025Q2

REPORT INFORMATION
  Report Type: Report from Study
  Country: AR (occurrence: AR)
  Receive Date: 20210429
  Receipt Date: 20250616
  Transmission Date: 20250716
  Serious: Yes (Other)
  Sender: ROCHE
  Company Number: AR-ROCHE-2820810

PATIENT
  Age: 40 Year
  Sex: Female
  Weight: 48.0 kg

DRUGS (6)
  1. MABTHERA [Suspect]
     Active Substance: RITUXIMAB
     Indication: Neuromyelitis optica spectrum disorder
     Route: 065
     Dates: start: 2019
  2. MABTHERA [Suspect]
     Active Substance: RITUXIMAB
     Route: 065
     Dates: start: 2017
  3. CELLCEPT [Suspect]
     Active Substance: MYCOPHENOLATE MOFETIL
     Indication: Neuromyelitis optica spectrum disorder
     Route: 065
     Dates: start: 201905
  4. SATRALIZUMAB [Suspect]
     Active Substance: SATRALIZUMAB
     Indication: Neuromyelitis optica spectrum disorder
     Route: 065
  5. NOVEX (ARGENTINA) [Concomitant]
  6. RITUXIMAB [Concomitant]
     Active Substance: RITUXIMAB

REACTIONS (7)
  - Optic neuritis [Recovered/Resolved]
  - Off label use [Unknown]
  - Intermenstrual bleeding [Unknown]
  - Iron deficiency anaemia [Recovering/Resolving]
  - B-lymphocyte count decreased [Unknown]
  - Hormone level abnormal [Unknown]
  - Dyspepsia [Unknown]

NARRATIVE: CASE EVENT DATE: 20191001
